FAERS Safety Report 7370155-8 (Version None)
Quarter: 2011Q1

REPORT INFORMATION
  Report Type: 
  Country: None (occurrence: None)
  Receive Date: 20110323
  Receipt Date: 20100831
  Transmission Date: 20110831
  Serious: No
  Sender: FDA-Public Use
  Company Number: US-ASTRAZENECA-2010SE40860

PATIENT
  Sex: Female

DRUGS (1)
  1. ZESTRIL [Suspect]
     Indication: HYPERTENSION
     Route: 048

REACTIONS (2)
  - ABDOMINAL DISTENSION [None]
  - ABDOMINAL DISCOMFORT [None]
